FAERS Safety Report 5786026-4 (Version None)
Quarter: 2008Q2

REPORT INFORMATION
  Report Type: 
  Country: None (occurrence: None)
  Receive Date: 20080624
  Receipt Date: 20070618
  Transmission Date: 20081010
  Serious: No
  Sender: FDA-Public Use
  Company Number: US-ASTRAZENECA-2007UW14533

PATIENT
  Age: 66 Year
  Sex: Female
  Weight: 50.8 kg

DRUGS (2)
  1. PULMICORT [Suspect]
     Indication: ASTHMA
     Dosage: ONLY USED WHEN ASTHMA FLARES UP IN APRIL AND NOVEMBER
     Route: 055
     Dates: start: 20040101
  2. ALBUTEROL [Concomitant]
     Indication: WHEEZING

REACTIONS (4)
  - BLOOD GLUCOSE INCREASED [None]
  - BLOOD PRESSURE INCREASED [None]
  - DIARRHOEA [None]
  - WEIGHT DECREASED [None]
